FAERS Safety Report 5589947-0 (Version None)
Quarter: 2008Q1

REPORT INFORMATION
  Report Type: 
  Country: None (occurrence: None)
  Receive Date: 20080114
  Receipt Date: 20080104
  Transmission Date: 20080703
  Serious: Yes (Death)
  Sender: FDA-Public Use
  Company Number: US-JNJFOC-20080101306

PATIENT
  Age: 34 Year
  Sex: Male

DRUGS (6)
  1. METHYLPHENIDATE HCL [Suspect]
     Indication: SUICIDE ATTEMPT
     Route: 048
  2. AMPHETAMINE [Suspect]
     Indication: SUICIDE ATTEMPT
     Route: 048
  3. BUPROPION HCL [Suspect]
     Indication: SUICIDE ATTEMPT
     Route: 048
  4. PROPOXYPHENE HCL AND ACETAMINOPHEN [Suspect]
     Indication: SUICIDE ATTEMPT
     Route: 048
  5. BENZODIAZEPINE [Suspect]
     Indication: SUICIDE ATTEMPT
     Route: 048
  6. ETHANOL [Suspect]
     Indication: SUICIDE ATTEMPT
     Route: 048

REACTIONS (1)
  - DRUG TOXICITY [None]
